FAERS Safety Report 9447412 (Version 1)
Quarter: 2013Q3

REPORT INFORMATION
  Report Type: Spontaneous
  Country: US (occurrence: US)
  Receive Date: 20130806
  Receipt Date: 20130806
  Transmission Date: 20140515
  Serious: Yes (Hospitalization, Other)
  Sender: FDA-Public Use
  Company Number: QSC-2013-0235

PATIENT
  Age: 70 Year
  Sex: Female

DRUGS (1)
  1. H. P. ACTHAR GEL [Suspect]
     Indication: NEPHROTIC SYNDROME
     Dosage: DOSAGE ADMINISTERED EVERY TWO WEEKS FOR SIX MONTHS.
     Route: 058
     Dates: start: 20130606

REACTIONS (9)
  - Adenocarcinoma pancreas [None]
  - Dysgeusia [None]
  - Hypoaesthesia oral [None]
  - Hypoaesthesia [None]
  - Hypoaesthesia [None]
  - Hypoaesthesia [None]
  - Hypoaesthesia [None]
  - Fatigue [None]
  - Somnolence [None]
